FAERS Safety Report 10136678 (Version 2)
Quarter: 2014Q2

REPORT INFORMATION
  Report Type: Spontaneous
  Country: JP (occurrence: JP)
  Receive Date: 20140429
  Receipt Date: 20140617
  Transmission Date: 20141212
  Serious: Yes (Death)
  Sender: FDA-Public Use
  Company Number: JP-JNJFOC-20140416782

PATIENT
  Age: 96 Year
  Sex: Male
  Weight: 63 kg

DRUGS (10)
  1. XARELTO [Suspect]
     Indication: ATRIAL FIBRILLATION
     Route: 048
     Dates: start: 20140226, end: 20140407
  2. XARELTO [Suspect]
     Indication: CEREBROVASCULAR ACCIDENT PROPHYLAXIS
     Route: 048
     Dates: start: 20140226, end: 20140407
  3. NU-LOTAN [Concomitant]
     Route: 048
     Dates: start: 2004
  4. CEROCRAL [Concomitant]
     Route: 048
     Dates: start: 2004
  5. BAYASPIRIN [Concomitant]
     Route: 048
     Dates: start: 2004
  6. BEPRIDIL [Concomitant]
     Route: 048
     Dates: start: 20140226
  7. ATELEC [Concomitant]
     Route: 048
     Dates: start: 20131224
  8. MAGLAX [Concomitant]
     Route: 048
     Dates: start: 2004
  9. HARNAL [Concomitant]
     Route: 048
     Dates: start: 2004
  10. EVIPROSTAT [Concomitant]
     Route: 048
     Dates: start: 2004

REACTIONS (2)
  - Interstitial lung disease [Fatal]
  - Acute respiratory distress syndrome [Fatal]
